FAERS Safety Report 20628601 (Version 2)
Quarter: 2022Q2

REPORT INFORMATION
  Report Type: Spontaneous
  Country: US (occurrence: US)
  Receive Date: 20220323
  Receipt Date: 20220425
  Transmission Date: 20220721
  Serious: Yes (Death, Hospitalization)
  Sender: FDA-Public Use
  Company Number: US-AVEO ONCOLOGY-2022-AVEO-US000081

PATIENT

DRUGS (21)
  1. FOTIVDA [Suspect]
     Active Substance: TIVOZANIB HYDROCHLORIDE
     Indication: Renal cell carcinoma
     Dosage: 1.34 MG, ONCE DAILY FOR 21 DAYS, 7 DAYS OFF
     Route: 048
     Dates: start: 20220224
  2. ACETAMINOPHEN [Concomitant]
     Active Substance: ACETAMINOPHEN
  3. AMLODIPINE [Concomitant]
     Active Substance: AMLODIPINE BESYLATE
  4. VITAMINS [Concomitant]
     Active Substance: VITAMINS
  5. CLARITIN [Concomitant]
     Active Substance: LORATADINE
  6. DULOXETINE [Concomitant]
     Active Substance: DULOXETINE
  7. ELIQUIS [Concomitant]
     Active Substance: APIXABAN
  8. FAMOTIDINE [Concomitant]
     Active Substance: FAMOTIDINE
  9. GABAPENTIN [Concomitant]
     Active Substance: GABAPENTIN
  10. HYDROXYCHLOROQUINE [Concomitant]
     Active Substance: HYDROXYCHLOROQUINE
  11. LANTUS [Concomitant]
     Active Substance: INSULIN GLARGINE
  12. METOPROLOL [Concomitant]
     Active Substance: METOPROLOL
  13. LEVOTHYROXINE [Concomitant]
     Active Substance: LEVOTHYROXINE
  14. MIRALAX [Concomitant]
     Active Substance: POLYETHYLENE GLYCOL 3350
  15. OXYCODONE [Concomitant]
     Active Substance: OXYCODONE
  16. METHYLPHENIDATE [Concomitant]
     Active Substance: METHYLPHENIDATE
  17. VIMPAT [Concomitant]
     Active Substance: LACOSAMIDE
  18. VITAMIN D3 [Concomitant]
     Active Substance: CHOLECALCIFEROL
  19. PREDNISONE [Concomitant]
     Active Substance: PREDNISONE
  20. PRAVASTATIN [Concomitant]
     Active Substance: PRAVASTATIN
  21. SENNA [Concomitant]
     Active Substance: SENNA LEAF\SENNOSIDES\SENNOSIDES A AND B

REACTIONS (6)
  - Death [Fatal]
  - Hospitalisation [Unknown]
  - Decreased appetite [Unknown]
  - Nausea [Unknown]
  - Pain [Unknown]
  - Confusional state [Unknown]
